FAERS Safety Report 16271517 (Version 1)
Quarter: 2019Q2

REPORT INFORMATION
  Report Type: Report from Study
  Country: FR (occurrence: FR)
  Receive Date: 20190503
  Receipt Date: 20190503
  Transmission Date: 20190711
  Serious: Yes (Other)
  Sender: FDA-Public Use
  Company Number: FR-JNJFOC-20190439191

PATIENT

DRUGS (5)
  1. INFLIXIMAB, RECOMBINANT [Suspect]
     Active Substance: INFLIXIMAB
     Indication: INFLAMMATORY BOWEL DISEASE
     Route: 042
  2. CERTOLIZUMAB [Suspect]
     Active Substance: CERTOLIZUMAB
     Indication: INFLAMMATORY BOWEL DISEASE
     Route: 065
  3. VEDOLIZUMAB [Suspect]
     Active Substance: VEDOLIZUMAB
     Indication: INFLAMMATORY BOWEL DISEASE
     Route: 065
  4. USTEKINUMAB [Suspect]
     Active Substance: USTEKINUMAB
     Indication: SKIN REACTION
     Route: 058
  5. ADALIMUMAB [Suspect]
     Active Substance: ADALIMUMAB
     Indication: INFLAMMATORY BOWEL DISEASE
     Route: 065

REACTIONS (17)
  - Polyarthritis [Recovered/Resolved]
  - Facial paralysis [Recovered/Resolved]
  - Rash pustular [Recovered/Resolved]
  - Injection site reaction [Recovered/Resolved]
  - Neuropathy peripheral [Recovered/Resolved]
  - Dermatitis psoriasiform [Recovering/Resolving]
  - Haemolytic anaemia [Recovered/Resolved]
  - Polyarteritis nodosa [Recovered/Resolved]
  - Eczema [Recovered/Resolved]
  - Anaphylactoid reaction [Recovered/Resolved]
  - Off label use [Unknown]
  - Psoriasis [Recovered/Resolved]
  - Rhinitis [Recovered/Resolved]
  - Eczema asteatotic [Recovered/Resolved]
  - Drug ineffective for unapproved indication [Unknown]
  - Infection [Recovered/Resolved]
  - Alopecia areata [Recovered/Resolved]
